FAERS Safety Report 13177807 (Version 3)
Quarter: 2017Q1

REPORT INFORMATION
  Report Type: Report from Study
  Country: US (occurrence: US)
  Receive Date: 20170201
  Receipt Date: 20170303
  Transmission Date: 20170428
  Serious: Yes (Hospitalization)
  Sender: FDA-Public Use
  Company Number: US-BIOGEN-2017BI00350077

PATIENT
  Sex: Male

DRUGS (1)
  1. TECFIDERA [Suspect]
     Active Substance: DIMETHYL FUMARATE
     Indication: MULTIPLE SCLEROSIS
     Dosage: MAINTENANCE DOSE
     Route: 048
     Dates: start: 20151022

REACTIONS (6)
  - Chemical injury [Recovered/Resolved]
  - Gastric perforation [Recovered/Resolved]
  - Amnesia [Unknown]
  - Weight decreased [Not Recovered/Not Resolved]
  - Oesophageal perforation [Recovered/Resolved]
  - Intestinal perforation [Recovered/Resolved]
